FAERS Safety Report 6655272-X (Version None)
Quarter: 2010Q1

REPORT INFORMATION
  Report Type: 
  Country: None (occurrence: None)
  Receive Date: 20100324
  Receipt Date: 20100303
  Transmission Date: 20100710
  Serious: Yes (Hospitalization)
  Sender: FDA-Public Use
  Company Number: FR-SOLVAY-00399000255

PATIENT
  Age: 62 Year
  Sex: Male

DRUGS (4)
  1. FLUVOXAMINE MALEATE [Suspect]
     Indication: ILL-DEFINED DISORDER
     Dosage: 50 MILLIGRAM(S); ORAL
     Route: 048
  2. LORAZEPAM [Suspect]
     Indication: ILL-DEFINED DISORDER
     Dosage: 2 MILLIGRAM(S), ORAL
     Route: 048
  3. LITHIUM CARBONATE [Suspect]
     Indication: ILL-DEFINED DISORDER
     Dosage: 1625 MILLIGRAM(S), ORAL
     Route: 048
     Dates: start: 19870615
  4. XANAX [Suspect]
     Indication: ILL-DEFINED DISORDER
     Dosage: 0.25 MILLIGRAM(S), ORAL
     Route: 048

REACTIONS (5)
  - CONGESTIVE CARDIOMYOPATHY [None]
  - EJECTION FRACTION DECREASED [None]
  - ELECTROCARDIOGRAM T WAVE AMPLITUDE DECREASED [None]
  - MYOCARDITIS INFECTIOUS [None]
  - VENTRICULAR EXTRASYSTOLES [None]
